FAERS Safety Report 15979734 (Version 1)
Quarter: 2019Q1

REPORT INFORMATION
  Report Type: Spontaneous
  Country: US (occurrence: US)
  Receive Date: 20190217
  Receipt Date: 20190217
  Transmission Date: 20190418
  Serious: Yes (Disabling)
  Sender: FDA-Public Use
  Company Number: None

PATIENT
  Age: 46 Year
  Sex: Female
  Weight: 47.25 kg

DRUGS (1)
  1. TROVAFLOXACIN [Suspect]
     Active Substance: TROVAFLOXACIN
     Indication: CELLULITIS

REACTIONS (1)
  - Thoracic outlet syndrome [None]

NARRATIVE: CASE EVENT DATE: 19980401
